FAERS Safety Report 17760341 (Version 1)
Quarter: 2020Q2

REPORT INFORMATION
  Report Type: Spontaneous
  Country: US (occurrence: US)
  Receive Date: 20200508
  Receipt Date: 20200508
  Transmission Date: 20200714
  Serious: Yes (Other)
  Sender: FDA-Public Use
  Company Number: US-TEVA-2020-US-1232852

PATIENT
  Age: 85 Year
  Sex: Female

DRUGS (1)
  1. ACTAVIS^S METOPROLOL SUCCINATE ER 25MG [Suspect]
     Active Substance: METOPROLOL SUCCINATE
     Route: 065
     Dates: start: 201912

REACTIONS (3)
  - Mastectomy [Recovering/Resolving]
  - Fatigue [Not Recovered/Not Resolved]
  - Product substitution issue [Unknown]

NARRATIVE: CASE EVENT DATE: 201912
